FAERS Safety Report 4839729-X (Version None)
Quarter: 2005Q4

REPORT INFORMATION
  Report Type: 
  Country: None (occurrence: None)
  Receive Date: 20051129
  Receipt Date: 20050719
  Transmission Date: 20060501
  Serious: No
  Sender: FDA-Public Use
  Company Number: US-GLAXOSMITHKLINE-A0566893A

PATIENT
  Sex: Female

DRUGS (9)
  1. WELLBUTRIN [Suspect]
     Indication: DEPRESSION
     Dosage: 150MG TWICE PER DAY
     Route: 048
  2. WELLBUTRIN [Suspect]
     Dosage: 300MG PER DAY
     Route: 048
     Dates: start: 20050601
  3. TRILEPTAL [Concomitant]
  4. LISINOPRIL [Concomitant]
  5. POTASSIUM CL [Concomitant]
  6. ZELNORM [Concomitant]
  7. AMILORIDE [Concomitant]
  8. CITRUCEL [Concomitant]
  9. HYDROCHLOROTHIAZIDE [Concomitant]

REACTIONS (2)
  - CONSTIPATION [None]
  - TREMOR [None]
